FAERS Safety Report 15236003 (Version 1)
Quarter: 2018Q3

REPORT INFORMATION
  Report Type: Spontaneous
  Country: US (occurrence: US)
  Receive Date: 20180803
  Receipt Date: 20180803
  Transmission Date: 20181010
  Serious: Yes (Death)
  Sender: FDA-Public Use
  Company Number: US-BAYER-2018-144167

PATIENT
  Age: 87 Year
  Sex: Female

DRUGS (8)
  1. DIPHENOXYLATE/ATROPINE [DIPHENOXYLATE HYDROCHLORIDE] [Concomitant]
     Dosage: 2.5 MG, UNK
  2. OXYBUTYNIN. [Concomitant]
     Active Substance: OXYBUTYNIN CHLORIDE
     Dosage: 5 MG, UNK
  3. BETASERON [Suspect]
     Active Substance: INTERFERON BETA-1B
     Indication: COGNITIVE DISORDER
     Dosage: 0.25 MG, QOD
     Route: 058
  4. POTASSIUM CHLORIDE. [Concomitant]
     Active Substance: POTASSIUM CHLORIDE
  5. PRADAXA [Concomitant]
     Active Substance: DABIGATRAN ETEXILATE MESYLATE
     Dosage: 75 MG, UNK
  6. CARTIA XT [Concomitant]
     Active Substance: DILTIAZEM HYDROCHLORIDE
     Dosage: UNK UNK, QD
  7. DIGOX [Concomitant]
     Active Substance: DIGOXIN
     Dosage: 0.125 MG, UNK
  8. FUROSEMIDE. [Concomitant]
     Active Substance: FUROSEMIDE
     Dosage: 40 MG, UNK

REACTIONS (2)
  - Death [Fatal]
  - Product use in unapproved indication [None]

NARRATIVE: CASE EVENT DATE: 20180728
